FAERS Safety Report 13950446 (Version 1)
Quarter: 2017Q3

REPORT INFORMATION
  Report Type: Spontaneous
  Country: US (occurrence: US)
  Receive Date: 20170908
  Receipt Date: 20170908
  Transmission Date: 20171128
  Serious: Yes (Other)
  Sender: FDA-Public Use
  Company Number: US-ROCHE-1135823

PATIENT
  Sex: Male

DRUGS (5)
  1. RITUXAN [Suspect]
     Active Substance: RITUXIMAB
     Indication: CHRONIC LYMPHOCYTIC LEUKAEMIA
     Route: 050
  2. PREDNISONE. [Concomitant]
     Active Substance: PREDNISONE
     Route: 050
  3. LEUKERAN [Concomitant]
     Active Substance: CHLORAMBUCIL
     Route: 050
  4. FLUDARABINE [Concomitant]
     Active Substance: FLUDARABINE PHOSPHATE
     Route: 050
  5. NOVANTRONE [Concomitant]
     Active Substance: MITOXANTRONE HYDROCHLORIDE
     Route: 050

REACTIONS (2)
  - Skin lesion [Unknown]
  - Lymphadenopathy [Unknown]
